FAERS Safety Report 21125759 (Version 1)
Quarter: 2022Q3

REPORT INFORMATION
  Report Type: Report from Study
  Country: US (occurrence: US)
  Receive Date: 20220725
  Receipt Date: 20220725
  Transmission Date: 20221026
  Serious: Yes (Hospitalization, Other)
  Sender: FDA-Public Use
  Company Number: US-Clinigen Group PLC/ Clinigen Healthcare Ltd-US-CLGN-22-00301

PATIENT
  Age: 63 Year
  Sex: Male

DRUGS (3)
  1. FOSCARNET SODIUM [Suspect]
     Active Substance: FOSCARNET SODIUM
     Indication: Cytomegalovirus infection
  2. MARIBAVIR [Suspect]
     Active Substance: MARIBAVIR
     Indication: Cytomegalovirus infection
     Route: 048
     Dates: start: 20220325
  3. MARIBAVIR [Suspect]
     Active Substance: MARIBAVIR
     Route: 048

REACTIONS (4)
  - Viral load increased [Unknown]
  - Renal failure [Recovered/Resolved]
  - Taste disorder [Unknown]
  - Therapy non-responder [Unknown]

NARRATIVE: CASE EVENT DATE: 20220325
